FAERS Safety Report 17843151 (Version 1)
Quarter: 2020Q2

REPORT INFORMATION
  Report Type: Spontaneous
  Country: US (occurrence: US)
  Receive Date: 20200530
  Receipt Date: 20200530
  Transmission Date: 20200714
  Serious: Yes (Hospitalization)
  Sender: FDA-Public Use
  Company Number: US-ROCHE-2611293

PATIENT
  Age: 53 Year
  Sex: Female

DRUGS (1)
  1. ACTEMRA [Suspect]
     Active Substance: TOCILIZUMAB
     Indication: RHEUMATOID ARTHRITIS
     Dosage: ONGOING: YES, 162MG/ML ONCE EVERY OTHER WEEK,? FORM STRENGTH (162/0.9 MG/ML)
     Route: 030
     Dates: start: 20191127

REACTIONS (1)
  - Pneumothorax spontaneous [Unknown]

NARRATIVE: CASE EVENT DATE: 20200415
